FAERS Safety Report 9214352 (Version 8)
Quarter: 2017Q1

REPORT INFORMATION
  Report Type: Spontaneous
  Country: US (occurrence: US)
  Receive Date: 20130405
  Receipt Date: 20170327
  Transmission Date: 20170429
  Serious: Yes (Death, Hospitalization, Disabling, Other)
  Sender: FDA-Public Use
  Company Number: US-JNJFOC-20130317513

PATIENT
  Age: 71 Year
  Sex: Female

DRUGS (7)
  1. GLUCOPHAGE [Concomitant]
     Active Substance: METFORMIN HYDROCHLORIDE
     Indication: TYPE 2 DIABETES MELLITUS
     Route: 048
     Dates: start: 20130110
  2. ATENOLOL. [Concomitant]
     Active Substance: ATENOLOL
     Route: 048
     Dates: start: 20090824
  3. ZYPREXA [Concomitant]
     Active Substance: OLANZAPINE
     Route: 048
     Dates: start: 20130110
  4. XARELTO [Suspect]
     Active Substance: RIVAROXABAN
     Indication: ATRIAL FIBRILLATION
     Route: 048
     Dates: start: 20121211, end: 20130116
  5. METFORMIN [Concomitant]
     Active Substance: METFORMIN HYDROCHLORIDE
     Route: 065
  6. XARELTO [Suspect]
     Active Substance: RIVAROXABAN
     Indication: CEREBROVASCULAR ACCIDENT PROPHYLAXIS
     Route: 048
     Dates: start: 20121211, end: 20130116
  7. XARELTO [Suspect]
     Active Substance: RIVAROXABAN
     Indication: ANTICOAGULANT THERAPY
     Route: 048
     Dates: start: 20121211, end: 20130116

REACTIONS (6)
  - Haemorrhagic stroke [Fatal]
  - Gastrointestinal haemorrhage [Unknown]
  - Diarrhoea [Recovered/Resolved]
  - Off label use [Unknown]
  - Dehydration [Unknown]
  - Incorrect dose administered [Unknown]

NARRATIVE: CASE EVENT DATE: 20121211
